FAERS Safety Report 12937422 (Version 1)
Quarter: 2016Q4

REPORT INFORMATION
  Report Type: Spontaneous
  Country: US (occurrence: US)
  Receive Date: 20161114
  Receipt Date: 20161114
  Transmission Date: 20170207
  Serious: No
  Sender: FDA-Public Use
  Company Number: US-GALDERMA-US16004089

PATIENT
  Sex: Female

DRUGS (3)
  1. CLOBEX [Suspect]
     Active Substance: CLOBETASOL PROPIONATE
     Indication: PSORIASIS
     Dosage: 0.05%
     Route: 061
  2. VECTICAL [Suspect]
     Active Substance: CALCITRIOL
     Indication: PSORIASIS
     Dosage: 3 MCG/G
     Route: 061
  3. DESONIDE (DESONIDE) 0.05% [Concomitant]
     Active Substance: DESONIDE
     Indication: PSORIASIS
     Route: 061

REACTIONS (4)
  - Skin burning sensation [Unknown]
  - Skin irritation [Recovered/Resolved]
  - Erythema [Not Recovered/Not Resolved]
  - Drug ineffective [Not Recovered/Not Resolved]
